FAERS Safety Report 7909062-8 (Version None)
Quarter: 2011Q4

REPORT INFORMATION
  Report Type: 
  Country: None (occurrence: None)
  Receive Date: 20111111
  Receipt Date: 20111104
  Transmission Date: 20120403
  Serious: Yes (Hospitalization)
  Sender: FDA-Public Use
  Company Number: NL-MEDIMMUNE-MEDI-0013861

PATIENT
  Sex: Male
  Weight: 4.93 kg

DRUGS (3)
  1. SYNAGIS [Suspect]
     Route: 030
     Dates: start: 20111010, end: 20111010
  2. SPIRONOLACTONE [Concomitant]
  3. FUROSEMIDE [Concomitant]

REACTIONS (1)
  - CONGENITAL CARDIOVASCULAR ANOMALY [None]
